FAERS Safety Report 8418426-8 (Version None)
Quarter: 2012Q2

REPORT INFORMATION
  Report Type: 
  Country: None (occurrence: None)
  Receive Date: 20120607
  Receipt Date: 20120531
  Transmission Date: 20120825
  Serious: Yes (Disabling)
  Sender: FDA-Public Use
  Company Number: PT-PFIZER INC-2012124586

PATIENT
  Age: 50 Year
  Sex: Male
  Weight: 89 kg

DRUGS (3)
  1. BETAHISTINE HYDROCHLORIDE [Concomitant]
     Indication: BALANCE DISORDER
     Dosage: 16 MG, 2X/DAY
     Route: 048
     Dates: start: 20111019, end: 20120420
  2. BUPROPION HYDROCHLORIDE [Concomitant]
     Indication: DEPRESSION
     Dosage: 150 MG, 1X/DAY
     Route: 048
     Dates: start: 20111019, end: 20120323
  3. LYRICA [Suspect]
     Indication: GENERALISED ANXIETY DISORDER
     Dosage: 100 MG, 3X/DAY
     Route: 048
     Dates: start: 20120103, end: 20120323

REACTIONS (6)
  - IRRITABILITY [None]
  - DIZZINESS [None]
  - DISORIENTATION [None]
  - SPEECH DISORDER [None]
  - VERTIGO [None]
  - CONFUSIONAL STATE [None]
